FAERS Safety Report 8910971 (Version 2)
Quarter: 2012Q4

REPORT INFORMATION
  Report Type: 
  Country: GB (occurrence: GB)
  Receive Date: 20121116
  Receipt Date: 20121123
  Transmission Date: 20130627
  Serious: Yes (Other)
  Sender: FDA-Public Use
  Company Number: GB-JNJFOC-20121104986

PATIENT

DRUGS (7)
  1. DOXORUBICIN [Suspect]
     Indication: SPLENIC MARGINAL ZONE LYMPHOMA
     Route: 042
  2. VINCRISTINE [Suspect]
     Indication: SPLENIC MARGINAL ZONE LYMPHOMA
     Route: 065
  3. PREDNISOLONE [Suspect]
     Indication: SPLENIC MARGINAL ZONE LYMPHOMA
     Route: 065
  4. RITUXIMAB [Suspect]
     Indication: SPLENIC MARGINAL ZONE LYMPHOMA
     Dosage: on day 1 of each cycle, for up to 6 cycles
     Route: 065
  5. FLUDARABINE [Suspect]
     Indication: SPLENIC MARGINAL ZONE LYMPHOMA
     Route: 065
  6. MITOXANTRONE [Suspect]
     Indication: SPLENIC MARGINAL ZONE LYMPHOMA
     Route: 065
  7. CYCLOPHOSPHAMIDE [Suspect]
     Indication: SPLENIC MARGINAL ZONE LYMPHOMA
     Route: 065

REACTIONS (9)
  - Toxicity to various agents [Unknown]
  - Pancytopenia [Unknown]
  - Neutropenia [Unknown]
  - Anaemia [Unknown]
  - Thrombocytopenia [Unknown]
  - Pneumonia [Unknown]
  - Aspergillosis [Unknown]
  - Lymphoma transformation [Unknown]
  - Infection [Unknown]
